FAERS Safety Report 21598259 (Version 2)
Quarter: 2023Q1

REPORT INFORMATION
  Report Type: Spontaneous
  Country: CZ (occurrence: None)
  Receive Date: 20221115
  Receipt Date: 20230105
  Transmission Date: 20230417
  Serious: Yes (Other)
  Sender: FDA-Public Use
  Company Number: CZ-ROCHE-3218756

PATIENT
  Age: 72 Year
  Sex: Male

DRUGS (2)
  1. TECENTRIQ [Suspect]
     Active Substance: ATEZOLIZUMAB
     Indication: Non-small cell lung cancer
     Dosage: C31 10/AUG/2022
     Route: 041
     Dates: start: 20201021
  2. BETAXA [Concomitant]

REACTIONS (1)
  - Ototoxicity [Recovered/Resolved]
